FAERS Safety Report 9897968 (Version 2)
Quarter: 2014Q1

REPORT INFORMATION
  Report Type: Spontaneous
  Country: US (occurrence: US)
  Receive Date: 20140214
  Receipt Date: 20140318
  Transmission Date: 20141002
  Serious: No
  Sender: FDA-Public Use
  Company Number: US-PFIZER INC-2014040803

PATIENT
  Age: 67 Year
  Sex: Female
  Weight: 45.35 kg

DRUGS (12)
  1. TIKOSYN [Suspect]
     Indication: ATRIAL FIBRILLATION
     Dosage: 0.25 MG, 2X/DAY
     Route: 048
     Dates: start: 2013
  2. TIKOSYN [Suspect]
     Dosage: 0.125 MG, 2X/DAY
     Route: 048
  3. FISH OIL [Concomitant]
     Dosage: UNK
  4. MAGNESIUM [Concomitant]
     Dosage: UNK
  5. POTASSIUM [Concomitant]
     Dosage: UNK
  6. FUROSEMIDE [Concomitant]
     Dosage: 20 MG (BY TAKING HALF TABLET OF 40MG), 1X/DAY
  7. NIACIN [Concomitant]
     Dosage: 250 MG, 1X/DAY
  8. LOSARTAN [Concomitant]
     Dosage: 25 MG, 1X/DAY
  9. CLOPIDOGREL [Concomitant]
     Indication: CARDIAC DISORDER
     Dosage: 75 MG, 1X/DAY
  10. ASPIRIN [Concomitant]
     Dosage: ONCE A DAY
  11. CARVEDILOL [Concomitant]
     Dosage: 25 MG, 2X/DAY
  12. OMEGA Q PLUS [Concomitant]
     Dosage: UNK

REACTIONS (6)
  - Heart rate increased [Unknown]
  - Arrhythmia [Recovered/Resolved]
  - Blood cholesterol increased [Unknown]
  - Poor quality sleep [Unknown]
  - Insomnia [Unknown]
  - Drug intolerance [Unknown]
